FAERS Safety Report 8086742-8 (Version None)
Quarter: 2012Q1

REPORT INFORMATION
  Report Type: 
  Country: None (occurrence: None)
  Receive Date: 20120128
  Receipt Date: 20110613
  Transmission Date: 20120608
  Serious: No
  Sender: FDA-Public Use
  Company Number: US-ABBOTT-11P-163-0731928-00

PATIENT
  Age: 52 Year
  Sex: Female

DRUGS (4)
  1. FELDENE [Concomitant]
     Indication: INFLAMMATION
  2. HUMIRA [Suspect]
     Indication: RHEUMATOID ARTHRITIS
     Dates: start: 20110530
  3. ARAVA [Concomitant]
     Indication: RHEUMATOID ARTHRITIS
  4. VICODIN [Concomitant]
     Indication: PAIN

REACTIONS (2)
  - INJECTION SITE RASH [None]
  - RASH ERYTHEMATOUS [None]
